FAERS Safety Report 13818178 (Version 1)
Quarter: 2017Q3

REPORT INFORMATION
  Report Type: Spontaneous
  Country: US (occurrence: US)
  Receive Date: 20170731
  Receipt Date: 20170731
  Transmission Date: 20171127
  Serious: No
  Sender: FDA-Public Use
  Company Number: US-ROCHE-639039

PATIENT
  Age: 66 Year
  Sex: Female

DRUGS (4)
  1. ALLEGRA [Concomitant]
     Active Substance: FEXOFENADINE HYDROCHLORIDE
     Route: 065
  2. BONIVA [Suspect]
     Active Substance: IBANDRONATE SODIUM
     Indication: OSTEOPOROSIS
     Dosage: DOSE: 3 MG/ML
     Route: 042
  3. BONIVA [Suspect]
     Active Substance: IBANDRONATE SODIUM
     Indication: OSTEOPOROSIS
     Route: 065
  4. ENALAPRIL [Concomitant]
     Active Substance: ENALAPRIL
     Route: 065

REACTIONS (2)
  - Injection site inflammation [Recovering/Resolving]
  - Dyspepsia [Recovered/Resolved]

NARRATIVE: CASE EVENT DATE: 20090611
